FAERS Safety Report 16406488 (Version 1)
Quarter: 2019Q2

REPORT INFORMATION
  Report Type: Spontaneous
  Country: US (occurrence: US)
  Receive Date: 20190607
  Receipt Date: 20190607
  Transmission Date: 20190711
  Serious: No
  Sender: FDA-Public Use
  Company Number: US-TEVA-2019-US-1050583

PATIENT
  Sex: Female

DRUGS (1)
  1. COPAXONE [Suspect]
     Active Substance: GLATIRAMER ACETATE
     Dosage: ON COPAXONE: OVER A DECADE?FORM STRENGTH: UNKNOWN
     Route: 065

REACTIONS (3)
  - Calcinosis [Unknown]
  - Skin discolouration [Unknown]
  - Skin disorder [Unknown]
